FAERS Safety Report 11252344 (Version 1)
Quarter: 2015Q3

REPORT INFORMATION
  Report Type: Spontaneous
  Country: US (occurrence: US)
  Receive Date: 20150708
  Receipt Date: 20150708
  Transmission Date: 20151125
  Serious: Yes (Death, Hospitalization)
  Sender: FDA-Public Use
  Company Number: US-ELI_LILLY_AND_COMPANY-US201401010504

PATIENT
  Age: 64 Year
  Sex: Female

DRUGS (1)
  1. ALIMTA [Suspect]
     Active Substance: PEMETREXED DISODIUM
     Indication: ENDOMETRIAL CANCER
     Dosage: 950 MG, UNKNOWN
     Route: 065
     Dates: start: 20121220, end: 20130131

REACTIONS (6)
  - Dehydration [Fatal]
  - Anaemia [Unknown]
  - Tachycardia [Unknown]
  - Off label use [Unknown]
  - Abdominal pain [Unknown]
  - Malignant neoplasm progression [Fatal]

NARRATIVE: CASE EVENT DATE: 20130204
